FAERS Safety Report 7557393-6 (Version None)
Quarter: 2011Q2

REPORT INFORMATION
  Report Type: 
  Country: None (occurrence: None)
  Receive Date: 20110620
  Receipt Date: 20110609
  Transmission Date: 20111010
  Serious: Yes (Other)
  Sender: FDA-Public Use
  Company Number: US-ROCHE-782453

PATIENT
  Sex: Female

DRUGS (5)
  1. BONIVA [Suspect]
     Dosage: INJECTION
     Route: 065
  2. FOSAMAX [Suspect]
     Route: 065
  3. PREMPRO [Concomitant]
     Route: 065
  4. LYRICA [Suspect]
     Dosage: DOSE 75 MG 1/DAY(DAILY), PERMANENTLY WITHDRAWN. ON AND OFF FOR 2 YEARS. CAPSULE HARD.
     Route: 065
  5. CLARITHROMYCIN [Suspect]
     Indication: LUNG INFECTION
     Dosage: PERMANENTLY WITHDRAWN.
     Route: 065

REACTIONS (6)
  - DRUG DOSE OMISSION [None]
  - DYSPNOEA [None]
  - MALAISE [None]
  - BLOOD PRESSURE DECREASED [None]
  - PULMONARY HAEMORRHAGE [None]
  - LUNG INFECTION [None]
